FAERS Safety Report 15286958 (Version 1)
Quarter: 2018Q3

REPORT INFORMATION
  Report Type: Spontaneous
  Country: US (occurrence: US)
  Receive Date: 20180816
  Receipt Date: 20180816
  Transmission Date: 20181010
  Serious: Yes (Hospitalization)
  Sender: FDA-Public Use
  Company Number: US-STRIDES ARCOLAB LIMITED-2018SP006104

PATIENT

DRUGS (2)
  1. VORICONAZOLE. [Concomitant]
     Active Substance: VORICONAZOLE
     Indication: PRODUCT USED FOR UNKNOWN INDICATION
     Dosage: UNK
     Route: 065
  2. TACROLIMUS. [Suspect]
     Active Substance: TACROLIMUS
     Indication: LUNG TRANSPLANT
     Dosage: UNK
     Route: 065

REACTIONS (9)
  - Intracranial pressure increased [Unknown]
  - Mental status changes [Unknown]
  - Hyperammonaemia [Unknown]
  - Brain oedema [Unknown]
  - Mydriasis [Unknown]
  - Seizure [Recovered/Resolved]
  - Brain herniation [Unknown]
  - Status epilepticus [Recovered/Resolved]
  - Off label use [Unknown]
